FAERS Safety Report 8031598-2 (Version None)
Quarter: 2012Q1

REPORT INFORMATION
  Report Type: 
  Country: None (occurrence: None)
  Receive Date: 20120109
  Receipt Date: 20111230
  Transmission Date: 20120608
  Serious: Yes (Hospitalization, Other)
  Sender: FDA-Public Use
  Company Number: NL-MEDIMMUNE-MEDI-0014368

PATIENT
  Sex: Male
  Weight: 3.98 kg

DRUGS (1)
  1. SYNAGIS [Suspect]
     Indication: HEART DISEASE CONGENITAL
     Route: 030
     Dates: start: 20111206, end: 20111206

REACTIONS (2)
  - HEART DISEASE CONGENITAL [None]
  - DYSPNOEA [None]
